FAERS Safety Report 4667878-8 (Version None)
Quarter: 2005Q2

REPORT INFORMATION
  Report Type: 
  Country: None (occurrence: None)
  Receive Date: 20050520
  Receipt Date: 20030328
  Transmission Date: 20051028
  Serious: Yes (Death)
  Sender: FDA-Public Use
  Company Number: CA-SANOFI-SYNTHELABO-D01200300474

PATIENT
  Sex: Male
  Weight: 70.5 kg

DRUGS (20)
  1. SR57746 OR PLACEBO [Suspect]
     Route: 048
     Dates: start: 20030304, end: 20030326
  2. OXALIPLATIN [Suspect]
     Route: 042
     Dates: start: 20030326, end: 20030326
  3. FLUOROURACIL [Suspect]
     Dosage: 400 MG/M2 AS IV BOLUS THEN 600 MG/M2 AS 22 HOURS CONTINUOUS INFUSION D1-D2 Q2W
     Route: 042
     Dates: start: 20030326, end: 20030326
  4. LEUCOVORIN CALCIUM [Suspect]
     Dosage: 200 MG/M2 AS 2 HOURS INFUSION ON D1-D2 Q2W
     Route: 042
     Dates: start: 20030326, end: 20030326
  5. CELEBREX [Concomitant]
  6. IRON [Concomitant]
     Dosage: UNK
     Route: 065
     Dates: start: 20030120
  7. COLACE [Concomitant]
     Dosage: UNK
     Route: 065
     Dates: start: 20030210
  8. SENOKOT [Concomitant]
     Dosage: UNK
     Route: 065
     Dates: start: 20030210
  9. TYLENOL (CAPLET) [Concomitant]
     Dosage: UNK
     Route: 065
     Dates: start: 20030228
  10. ONDANSETRON [Concomitant]
     Dosage: UNK
     Route: 065
     Dates: start: 20030326, end: 20030327
  11. DEXAMETHASONE [Concomitant]
     Dosage: UNK
     Route: 065
     Dates: start: 20030326, end: 20030327
  12. METOCLOPRAMIDE [Concomitant]
     Dosage: UNK
     Route: 065
     Dates: start: 20030326, end: 20030327
  13. IMODIUM [Concomitant]
     Dosage: UNK
     Route: 065
     Dates: start: 20030317
  14. MORPHINE [Concomitant]
     Dosage: UNK
     Route: 065
     Dates: start: 20030321, end: 20030327
  15. ANCEF [Concomitant]
     Dosage: UNK
     Route: 065
     Dates: start: 20030321
  16. PROCHLORPERAZINE [Concomitant]
     Dosage: UNK
     Route: 065
     Dates: start: 20030321
  17. FENTANYL [Concomitant]
     Dosage: UNK
     Route: 065
     Dates: start: 20030321
  18. VERSED [Concomitant]
     Dosage: UNK
     Route: 065
     Dates: start: 20030321
  19. ATIVAN [Concomitant]
     Dosage: UNK
     Route: 065
     Dates: start: 20030327, end: 20030327
  20. GRAVOL TAB [Concomitant]
     Dosage: UNK
     Route: 065
     Dates: start: 20030322, end: 20030327

REACTIONS (11)
  - ARTERIAL DISORDER [None]
  - CARDIAC ARREST [None]
  - CHROMATURIA [None]
  - DISEASE PROGRESSION [None]
  - FALL [None]
  - GALLBLADDER OBSTRUCTION [None]
  - HAEMATEMESIS [None]
  - JAUNDICE [None]
  - LYMPHADENOPATHY [None]
  - SHOCK [None]
  - UPPER GASTROINTESTINAL HAEMORRHAGE [None]
